FAERS Safety Report 11867572 (Version 1)
Quarter: 2015Q4

REPORT INFORMATION
  Report Type: Report from Study
  Country: DE (occurrence: DE)
  Receive Date: 20151224
  Receipt Date: 20151224
  Transmission Date: 20160305
  Serious: Yes (Hospitalization, Other)
  Sender: FDA-Public Use
  Company Number: DE-ABBVIE-15K-062-1520511-00

PATIENT
  Age: 47 Year
  Sex: Female
  Weight: 69 kg

DRUGS (5)
  1. IMODIUM [Concomitant]
     Active Substance: LOPERAMIDE HYDROCHLORIDE
     Indication: SHORT-BOWEL SYNDROME
     Dates: start: 20150605
  2. HUMIRA [Suspect]
     Active Substance: ADALIMUMAB
     Indication: CROHN^S DISEASE
     Route: 058
     Dates: start: 20121210, end: 20130304
  3. PREDNISOLON [Concomitant]
     Active Substance: PREDNISOLONE
     Indication: CROHN^S DISEASE
     Dates: start: 20150110
  4. TRAMADOLOR [Concomitant]
     Active Substance: TRAMADOL
     Indication: PAIN
     Dates: start: 201505
  5. CHOLESTAGEL [Concomitant]
     Active Substance: COLESEVELAM HYDROCHLORIDE
     Indication: SHORT-BOWEL SYNDROME
     Dates: start: 20150605

REACTIONS (6)
  - Renal failure [Recovered/Resolved]
  - Medical device complication [Unknown]
  - Dehydration [Unknown]
  - Device related infection [Unknown]
  - Pain [Unknown]
  - Device related infection [Recovered/Resolved]

NARRATIVE: CASE EVENT DATE: 2013
